FAERS Safety Report 15653222 (Version 1)
Quarter: 2018Q4

REPORT INFORMATION
  Report Type: Report from Study
  Country: IT (occurrence: IT)
  Receive Date: 20181123
  Receipt Date: 20181123
  Transmission Date: 20190205
  Serious: Yes (Hospitalization)
  Sender: FDA-Public Use
  Company Number: IT-TEVA-2018-IT-977647

PATIENT
  Age: 73 Year
  Sex: Female

DRUGS (9)
  1. BISOPROLOL FUMARATE. [Concomitant]
     Active Substance: BISOPROLOL FUMARATE
     Dosage: 1250 MICROGRAM DAILY;
     Route: 048
  2. MINIAS 2,5 MG/ML GOCCE ORALI, SOLUZIONE [Concomitant]
     Active Substance: LORMETAZEPAM
     Dosage: 15 GTT DAILY;
  3. LORTAAN 50 MG COMPRESSE RIVESTITE CON FILM [Concomitant]
     Active Substance: LOSARTAN POTASSIUM
     Route: 065
  4. MADOPAR 200 MG + 50 MG COMPRESSE DIVISIBILI [Concomitant]
     Dosage: 250 MILLIGRAM DAILY;
     Route: 048
  5. MIRAPEXIN 1.05 MG PROLONGED-RELEASE TABLETS [Concomitant]
  6. SINEMET [Concomitant]
     Active Substance: CARBIDOPA\LEVODOPA
     Route: 065
  7. SIMVASTATIN. [Suspect]
     Active Substance: SIMVASTATIN
     Dosage: 20 MILLIGRAM DAILY;
     Route: 048
  8. COUMADIN [Suspect]
     Active Substance: WARFARIN SODIUM
     Indication: ATRIAL FIBRILLATION
     Route: 048
  9. PANTORC 20 MG COMPRESSE GASTRORESISTENTI [Concomitant]
     Active Substance: PANTOPRAZOLE SODIUM
     Dosage: 20 MILLIGRAM DAILY;
     Route: 048

REACTIONS (2)
  - International normalised ratio increased [Recovered/Resolved]
  - Melaena [Recovered/Resolved]

NARRATIVE: CASE EVENT DATE: 20170607
